FAERS Safety Report 20346652 (Version 1)
Quarter: 2022Q1

REPORT INFORMATION
  Report Type: Spontaneous
  Country: US (occurrence: None)
  Receive Date: 20220118
  Receipt Date: 20220118
  Transmission Date: 20220423
  Serious: Yes (Death, Hospitalization)
  Sender: FDA-Public Use
  Company Number: None

PATIENT
  Age: 4 Year
  Sex: Female
  Weight: 16.7 kg

DRUGS (3)
  1. DEXAMETHASONE [Suspect]
     Active Substance: DEXAMETHASONE
     Indication: Pneumatosis intestinalis
  2. VINCRISTINE SULFATE [Suspect]
     Active Substance: VINCRISTINE SULFATE
     Dates: end: 20220107
  3. ONCASPAR [Suspect]
     Active Substance: PEGASPARGASE
     Dosage: OTHER QUANTITY : 1725 UNIT;?
     Dates: end: 20220103

REACTIONS (5)
  - Viral myocarditis [None]
  - Brain injury [None]
  - Gastrointestinal wall thickening [None]
  - Pneumatosis intestinalis [None]
  - Septic shock [None]

NARRATIVE: CASE EVENT DATE: 20220113
